FAERS Safety Report 13424445 (Version 5)
Quarter: 2017Q2

REPORT INFORMATION
  Report Type: Spontaneous
  Country: TH (occurrence: TH)
  Receive Date: 20170410
  Receipt Date: 20170615
  Transmission Date: 20170830
  Serious: Yes (Hospitalization)
  Sender: FDA-Public Use
  Company Number: TH-EISAI MEDICAL RESEARCH-EC-2017-026489

PATIENT
  Age: 10 Year
  Sex: Male
  Weight: 27 kg

DRUGS (57)
  1. FYCOMPA [Suspect]
     Active Substance: PERAMPANEL
     Route: 048
     Dates: start: 20170316, end: 20170320
  2. PHENOBARBITAL. [Concomitant]
     Active Substance: PHENOBARBITAL
     Indication: SEIZURE
     Route: 042
     Dates: start: 20170203, end: 20170207
  3. PHENOBARBITAL. [Concomitant]
     Active Substance: PHENOBARBITAL
     Route: 042
     Dates: start: 20170210, end: 20170211
  4. KEPPRA [Concomitant]
     Active Substance: LEVETIRACETAM
     Dosage: UNKNOWN
     Route: 048
     Dates: start: 20170217, end: 20170221
  5. DEPAKIN [Concomitant]
     Active Substance: VALPROATE SODIUM
     Route: 042
     Dates: start: 20170206, end: 20170212
  6. KETAMINE [Concomitant]
     Active Substance: KETAMINE
     Dosage: 3.5 MG/KG/HR
     Route: 042
     Dates: start: 20170319, end: 20170319
  7. KETAMINE [Concomitant]
     Active Substance: KETAMINE
     Dosage: 3 MG/KG/HR
     Route: 042
     Dates: start: 20170320, end: 20170320
  8. PREDNISOLONE. [Concomitant]
     Active Substance: PREDNISOLONE
     Route: 048
     Dates: start: 20170319, end: 20170329
  9. OSELTAMIVIR [Concomitant]
     Active Substance: OSELTAMIVIR
     Indication: ANTIVIRAL TREATMENT
     Route: 048
     Dates: start: 20170202, end: 20170206
  10. CLONAZEPAM. [Concomitant]
     Active Substance: CLONAZEPAM
     Indication: SEIZURE
     Route: 048
     Dates: start: 20170215, end: 20170309
  11. PREDNISOLONE. [Concomitant]
     Active Substance: PREDNISOLONE
     Indication: STEROID THERAPY
     Route: 048
     Dates: start: 20170303, end: 20170315
  12. PARACETAMOL [Concomitant]
     Active Substance: ACETAMINOPHEN
     Indication: ANTIPYRESIS
     Dosage: UNKNOWN
     Route: 048
     Dates: start: 20170202, end: 20170214
  13. FYCOMPA [Suspect]
     Active Substance: PERAMPANEL
     Indication: SEIZURE
     Route: 048
     Dates: start: 20170211, end: 20170214
  14. PHENOBARBITAL. [Concomitant]
     Active Substance: PHENOBARBITAL
     Route: 042
     Dates: start: 20170204, end: 20170205
  15. KEPPRA [Concomitant]
     Active Substance: LEVETIRACETAM
     Dosage: UNKNOWN
     Route: 042
     Dates: start: 20170222, end: 20170228
  16. TOPAMAX [Concomitant]
     Active Substance: TOPIRAMATE
     Indication: SEIZURE
     Dosage: UNKNOWN
     Route: 048
     Dates: start: 20170208, end: 20170214
  17. KETAMINE [Concomitant]
     Active Substance: KETAMINE
     Dosage: 3.5 MG/KG/HR
     Route: 042
     Dates: start: 20170302, end: 20170305
  18. KETAMINE [Concomitant]
     Active Substance: KETAMINE
     Dosage: 4.5 MG/KG/HR
     Route: 042
     Dates: start: 20170317, end: 20170317
  19. DORMICUM [Concomitant]
     Indication: SEDATIVE THERAPY
     Route: 041
     Dates: start: 20170207, end: 20170213
  20. LYRICA [Concomitant]
     Active Substance: PREGABALIN
     Route: 048
     Dates: start: 20170313, end: 20170329
  21. DEPAKIN [Concomitant]
     Active Substance: VALPROATE SODIUM
     Indication: SEIZURE
     Route: 042
     Dates: start: 20170203, end: 20170205
  22. ACYCLOVIR. [Concomitant]
     Active Substance: ACYCLOVIR
     Indication: ANTIVIRAL TREATMENT
     Route: 041
     Dates: start: 20170202, end: 20170223
  23. AMIKACIN [Concomitant]
     Active Substance: AMIKACIN
     Indication: ANTIBIOTIC THERAPY
     Dosage: UNKNOWN
     Route: 065
     Dates: start: 20170224, end: 20170226
  24. PIPERACILLIN AND TAZOBACTAM [Concomitant]
     Active Substance: PIPERACILLIN SODIUM\TAZOBACTAM SODIUM
     Indication: ANTIBIOTIC THERAPY
     Route: 041
     Dates: start: 20170302, end: 20170310
  25. PHENOBARBITAL. [Concomitant]
     Active Substance: PHENOBARBITAL
     Route: 042
     Dates: start: 20170206, end: 20170208
  26. PHENOBARBITAL. [Concomitant]
     Active Substance: PHENOBARBITAL
     Route: 042
     Dates: start: 20170209, end: 20170209
  27. LOSEC [Concomitant]
     Active Substance: OMEPRAZOLE
     Indication: PROPHYLAXIS AGAINST GASTROINTESTINAL ULCER
     Route: 042
     Dates: start: 20170203, end: 20170207
  28. VANCOMYCIN [Concomitant]
     Active Substance: VANCOMYCIN
     Indication: ANTIBIOTIC THERAPY
     Route: 041
     Dates: start: 20170312, end: 20170315
  29. KETAMINE [Concomitant]
     Active Substance: KETAMINE
     Dosage: 5 MG/KG/HR
     Route: 042
     Dates: start: 20170314, end: 20170316
  30. KETAMINE [Concomitant]
     Active Substance: KETAMINE
     Dosage: 4 MG/KG/HR
     Route: 042
     Dates: start: 20170318, end: 20170318
  31. CLONAZEPAM. [Concomitant]
     Active Substance: CLONAZEPAM
     Route: 048
     Dates: start: 20170313, end: 20170329
  32. METHYLPREDNISOLONE. [Concomitant]
     Active Substance: METHYLPREDNISOLONE
     Indication: STEROID THERAPY
     Route: 041
     Dates: start: 20170228, end: 20170302
  33. LACOSAMIDE. [Concomitant]
     Active Substance: LACOSAMIDE
     Indication: SEIZURE
     Dosage: UNKNOWN
     Route: 065
     Dates: start: 20170209, end: 20170214
  34. LEVOFLOXACIN. [Concomitant]
     Active Substance: LEVOFLOXACIN
     Indication: ANTIBIOTIC THERAPY
     Route: 041
     Dates: start: 20170313, end: 20170313
  35. DOPAMINE [Concomitant]
     Active Substance: DOPAMINE\DOPAMINE HYDROCHLORIDE
     Indication: CARDIOGENIC SHOCK
     Dosage: 6 MG/ML
     Route: 042
     Dates: start: 20170208, end: 20170213
  36. DIAZEPAM. [Concomitant]
     Active Substance: DIAZEPAM
     Dates: start: 20170206, end: 20170207
  37. KEPPRA [Concomitant]
     Active Substance: LEVETIRACETAM
     Indication: SEIZURE
     Dosage: UNKNOWN
     Route: 065
     Dates: start: 20170203, end: 20170214
  38. MEROPENEM. [Concomitant]
     Active Substance: MEROPENEM
     Indication: ANTIBIOTIC THERAPY
     Route: 042
     Dates: start: 20170212, end: 20170301
  39. METHYLPREDNISOLONE. [Concomitant]
     Active Substance: METHYLPREDNISOLONE
     Route: 041
     Dates: start: 20170316, end: 20170318
  40. IVIG [Concomitant]
     Active Substance: HUMAN IMMUNOGLOBULIN G
     Indication: IMMUNOGLOBULIN THERAPY
     Route: 042
     Dates: start: 20170204, end: 20170205
  41. PHENOBARBITAL. [Concomitant]
     Active Substance: PHENOBARBITAL
     Route: 042
     Dates: start: 20170212, end: 20170213
  42. DEPAKIN [Concomitant]
     Active Substance: VALPROATE SODIUM
     Route: 048
     Dates: start: 20170208, end: 20170209
  43. KETAMINE [Concomitant]
     Active Substance: KETAMINE
     Indication: SEIZURE
     Dosage: 1.5 MG/KG/HR
     Route: 042
     Dates: start: 20170221, end: 20170301
  44. KETAMINE [Concomitant]
     Active Substance: KETAMINE
     Dosage: 3 MG/KG/HR
     Route: 042
     Dates: start: 20170306, end: 20170307
  45. CLONAZEPAM. [Concomitant]
     Active Substance: CLONAZEPAM
     Route: 048
     Dates: start: 20170310, end: 20170312
  46. LYRICA [Concomitant]
     Active Substance: PREGABALIN
     Indication: SEIZURE
     Route: 048
     Dates: start: 20170216, end: 20170312
  47. AMLODIPINE [Concomitant]
     Active Substance: AMLODIPINE BESYLATE
     Indication: HYPERTENSION
     Route: 048
     Dates: start: 20170311, end: 20170329
  48. AZITHROMYCIN ANHYDROUS. [Concomitant]
     Active Substance: AZITHROMYCIN ANHYDROUS
     Indication: ANTIBIOTIC THERAPY
     Route: 048
     Dates: start: 20170202, end: 20170206
  49. DIAZEPAM. [Concomitant]
     Active Substance: DIAZEPAM
     Indication: PRODUCT USED FOR UNKNOWN INDICATION
     Dates: start: 20170204, end: 20170204
  50. FYCOMPA [Suspect]
     Active Substance: PERAMPANEL
     Route: 048
     Dates: start: 20170223, end: 20170226
  51. DEPAKIN [Concomitant]
     Active Substance: VALPROATE SODIUM
     Route: 048
     Dates: start: 20170210, end: 20170213
  52. DEPAKIN [Concomitant]
     Active Substance: VALPROATE SODIUM
     Route: 042
     Dates: start: 20170210, end: 20170213
  53. CEFOTAXIME [Concomitant]
     Active Substance: CEFOTAXIME SODIUM
     Indication: ANTIBIOTIC THERAPY
     Route: 042
     Dates: start: 20170202, end: 20170211
  54. LEVOFLOXACIN. [Concomitant]
     Active Substance: LEVOFLOXACIN
     Route: 041
     Dates: start: 20170314, end: 20170320
  55. AMPHOTERICIN B. [Concomitant]
     Active Substance: AMPHOTERICIN B
     Indication: ANTIFUNGAL TREATMENT
     Dosage: UNKNOWN
     Route: 065
     Dates: start: 20170221, end: 20170305
  56. DIAZEPAM. [Concomitant]
     Active Substance: DIAZEPAM
     Dates: start: 20170209, end: 20170209
  57. NICARDIPINE [Concomitant]
     Active Substance: NICARDIPINE
     Indication: HYPERTENSION
     Dosage: UNKNOWN
     Dates: start: 20170302, end: 20170307

REACTIONS (3)
  - Urinary tract infection pseudomonal [Recovered/Resolved]
  - Acute kidney injury [Recovered/Resolved]
  - Drug reaction with eosinophilia and systemic symptoms [Recovered/Resolved]

NARRATIVE: CASE EVENT DATE: 20170214
